FAERS Safety Report 5281471-8 (Version None)
Quarter: 2007Q1

REPORT INFORMATION
  Report Type: 
  Country: None (occurrence: None)
  Receive Date: 20070323
  Receipt Date: 20070323
  Transmission Date: 20070707
  Serious: Yes (Hospitalization)
  Sender: FDA-Public Use
  Company Number: None

PATIENT
  Sex: Female

DRUGS (2)
  1. 17-OHPC HYDROXY PROGESTERONE CAPROATE EMINENT SERVICES [Suspect]
     Indication: HIGH RISK PREGNANCY
     Dosage: 250 MG/ML WEEKLY IM
     Route: 030
     Dates: start: 20061202, end: 20070315
  2. 17-OHPC HYDROXY PROGESTERONE CAPROATE EMINENT SERVICES [Suspect]
     Indication: PREGNANCY
     Dosage: 250 MG/ML WEEKLY IM
     Route: 030
     Dates: start: 20061202, end: 20070315

REACTIONS (7)
  - DRUG EXPOSURE DURING PREGNANCY [None]
  - HYPERHIDROSIS [None]
  - LOSS OF CONSCIOUSNESS [None]
  - NAUSEA [None]
  - PALPITATIONS [None]
  - PRESYNCOPE [None]
  - SYNCOPE [None]
